FAERS Safety Report 7159123-9 (Version None)
Quarter: 2010Q4

REPORT INFORMATION
  Report Type: 
  Country: None (occurrence: None)
  Receive Date: 20101214
  Receipt Date: 20100727
  Transmission Date: 20110411
  Serious: No
  Sender: FDA-Public Use
  Company Number: US-ASTRAZENECA-2010SE35152

PATIENT
  Sex: Male

DRUGS (2)
  1. CRESTOR [Suspect]
     Route: 048
  2. ZOCOR [Concomitant]

REACTIONS (3)
  - DRUG HYPERSENSITIVITY [None]
  - GAIT DISTURBANCE [None]
  - PAIN IN EXTREMITY [None]
